FAERS Safety Report 15515891 (Version 3)
Quarter: 2025Q3

REPORT INFORMATION
  Report Type: Spontaneous
  Country: EU (occurrence: EU)
  Receive Date: 20181017
  Receipt Date: 20250708
  Transmission Date: 20251021
  Serious: Yes (Other)
  Sender: AUROBINDO
  Company Number: EU-AUROBINDO-AUR-APL-2018-050942

PATIENT
  Age: 47 Year
  Sex: Female

DRUGS (2)
  1. ARIPIPRAZOLE [Suspect]
     Active Substance: ARIPIPRAZOLE
     Indication: Depersonalisation/derealisation disorder
     Dosage: 15 MILLIGRAM, ONCE A DAY
     Route: 065
     Dates: start: 2010
  2. ARIPIPRAZOLE [Suspect]
     Active Substance: ARIPIPRAZOLE
     Indication: Major depression

REACTIONS (10)
  - Alice in wonderland syndrome [Recovered/Resolved]
  - Visual impairment [Recovered/Resolved]
  - Dysmetria [Recovered/Resolved]
  - Derealisation [Recovered/Resolved]
  - Time perception altered [Recovered/Resolved]
  - Body dysmorphic disorder [Recovered/Resolved]
  - Aura [Recovered/Resolved]
  - Loss of personal independence in daily activities [Recovered/Resolved]
  - Depersonalisation/derealisation disorder [Recovered/Resolved]
  - Migraine [Recovered/Resolved]

NARRATIVE: CASE EVENT DATE: 20100101
